FAERS Safety Report 5796131-4 (Version None)
Quarter: 2008Q3

REPORT INFORMATION
  Report Type: 
  Country: None (occurrence: None)
  Receive Date: 20080701
  Receipt Date: 20080620
  Transmission Date: 20090109
  Serious: Yes (Hospitalization)
  Sender: FDA-Public Use
  Company Number: TW-BRISTOL-MYERS SQUIBB COMPANY-14234694

PATIENT
  Sex: Male
  Weight: 60 kg

DRUGS (3)
  1. ERBITUX [Suspect]
     Indication: HEAD AND NECK CANCER
     Dosage: STARTED ON: 12-MAY-2008 MOST RECENT INFUSION: 10-JUN-2008
     Route: 042
     Dates: start: 20080512, end: 20080610
  2. CISPLATIN [Suspect]
     Indication: HEAD AND NECK CANCER
     Dosage: STARTED ON: 12-MAY-2008 MOST RECENT INFUSION: 10-JUN-2008
     Route: 042
     Dates: start: 20080512, end: 20080610
  3. RADIATION THERAPY [Suspect]
     Indication: HEAD AND NECK CANCER

REACTIONS (1)
  - DERMATITIS BULLOUS [None]
